FAERS Safety Report 6841248-6 (Version None)
Quarter: 2010Q3

REPORT INFORMATION
  Report Type: 
  Country: None (occurrence: None)
  Receive Date: 20100714
  Receipt Date: 20070703
  Transmission Date: 20110219
  Serious: No
  Sender: FDA-Public Use
  Company Number: US-PFIZER INC-2007055192

PATIENT
  Sex: Female
  Weight: 75 kg

DRUGS (8)
  1. CHANTIX [Suspect]
     Dates: start: 20070601
  2. PRILOSEC [Concomitant]
  3. ACETYLSALICYLIC ACID [Concomitant]
  4. VYTORIN [Concomitant]
  5. CYMBALTA [Concomitant]
  6. CALCIUM [Concomitant]
  7. VITAMINS [Concomitant]
  8. LORAZEPAM [Concomitant]

REACTIONS (2)
  - ABNORMAL DREAMS [None]
  - FATIGUE [None]
